FAERS Safety Report 5934290-0 (Version None)
Quarter: 2008Q4

REPORT INFORMATION
  Report Type: 
  Country: None (occurrence: None)
  Receive Date: 20081029
  Receipt Date: 20081016
  Transmission Date: 20090506
  Serious: Yes (Other)
  Sender: FDA-Public Use
  Company Number: PHHY2008BR25045

PATIENT
  Age: 84 Year
  Sex: Female

DRUGS (4)
  1. DIOVAN HCT [Suspect]
     Dosage: 160/12.5 MG 1 TABLET/DAY
     Route: 048
  2. DIOVAN HCT [Suspect]
     Dosage: 320/12.5MG,  1 TABLET/DAY
     Dates: start: 20081017
  3. SELOZOK [Concomitant]
     Indication: CHEST DISCOMFORT
     Dosage: 1 TABLET/DAY
     Route: 048
  4. ZYPREXA [Concomitant]
     Dosage: 1 TABLET/DAY
     Route: 048

REACTIONS (2)
  - HYPERTENSION [None]
  - STRESS [None]
